FAERS Safety Report 17740754 (Version 1)
Quarter: 2020Q2

REPORT INFORMATION
  Report Type: Spontaneous
  Country: US (occurrence: US)
  Receive Date: 20200504
  Receipt Date: 20200504
  Transmission Date: 20200714
  Serious: Yes (Hospitalization, Other)
  Sender: FDA-Public Use
  Company Number: US-ADVANZ PHARMA-GSH201907-001630

PATIENT

DRUGS (5)
  1. HYDROXYCHLOROQUINE [Suspect]
     Active Substance: HYDROXYCHLOROQUINE
     Indication: AUTOIMMUNE DISORDER
     Dosage: UNK
     Route: 065
  2. HYDROXYCHLOROQUINE [Suspect]
     Active Substance: HYDROXYCHLOROQUINE
     Indication: LYMPHADENOPATHY
  3. METHYLPREDNISOLONE. [Suspect]
     Active Substance: METHYLPREDNISOLONE
     Indication: DRUG REACTION WITH EOSINOPHILIA AND SYSTEMIC SYMPTOMS
     Dosage: 60 MG, QID
     Route: 065
  4. METHYLPREDNISOLONE. [Suspect]
     Active Substance: METHYLPREDNISOLONE
     Dosage: 80 MG, BID
     Route: 065
  5. METHYLPREDNISOLONE. [Suspect]
     Active Substance: METHYLPREDNISOLONE
     Dosage: UNKUNKNOWN (TAPERED TO ORAL METHYLPREDNISOLONE)
     Route: 048

REACTIONS (14)
  - Rebound effect [Unknown]
  - Rash [Recovered/Resolved]
  - Face oedema [Unknown]
  - Drug reaction with eosinophilia and systemic symptoms [Recovered/Resolved]
  - Oedema peripheral [Unknown]
  - Drug eruption [Unknown]
  - Rash [Unknown]
  - Eosinophilia [Unknown]
  - Pyrexia [Unknown]
  - Epstein-Barr virus infection reactivation [Unknown]
  - Transaminases increased [Unknown]
  - Rash pruritic [Unknown]
  - Leukocytosis [Unknown]
  - Chills [Unknown]
